FAERS Safety Report 7539505-3 (Version None)
Quarter: 2011Q2

REPORT INFORMATION
  Report Type: 
  Country: None (occurrence: None)
  Receive Date: 20110610
  Receipt Date: 20110604
  Transmission Date: 20111010
  Serious: Yes (Other)
  Sender: FDA-Public Use
  Company Number: US-PFIZER INC-2011114940

PATIENT
  Sex: Female
  Weight: 124 kg

DRUGS (18)
  1. VITAMIN B COMPLEX CAP [Concomitant]
     Indication: PROPHYLAXIS
     Dosage: UNK
     Dates: start: 20110401
  2. FEMARA [Concomitant]
     Indication: BREAST CANCER
     Dosage: 2.5 MG, 1X/DAY
     Dates: start: 20100217
  3. MULTIVITAMIN ^LAPPE^ [Concomitant]
     Indication: PROPHYLAXIS
     Dosage: ONCE DAILY
     Dates: start: 20080131
  4. CORICIDIN [Concomitant]
     Indication: UPPER RESPIRATORY TRACT INFECTION
  5. LANTUS [Concomitant]
     Indication: DIABETES MELLITUS
     Dosage: 30 MG, HS
     Dates: start: 20100217
  6. VITAMIN D [Concomitant]
     Indication: PROPHYLAXIS
     Dosage: 1000 IU, 1X/DAY
     Dates: start: 20100806
  7. CORICIDIN [Concomitant]
     Indication: HYPERSENSITIVITY
     Dosage: UNK
     Dates: start: 20101107
  8. PLACEBO [Suspect]
     Indication: BREAST CANCER
     Dosage: UNK
     Route: 048
     Dates: start: 20100217, end: 20110212
  9. BLINDED NERATINIB [Suspect]
     Indication: BREAST CANCER
     Dosage: UNK
     Route: 048
     Dates: start: 20100217, end: 20110212
  10. LIPITOR [Suspect]
     Indication: HYPERTRIGLYCERIDAEMIA
     Dosage: 20 MG, AT BEDTIME
     Dates: start: 20100318, end: 20110421
  11. GLUCOVANCE [Concomitant]
     Indication: DIABETES MELLITUS
     Dosage: 5/500
     Dates: start: 20051003
  12. CALCIUM WITH VITAMIN D [Concomitant]
     Indication: PROPHYLAXIS
     Dosage: 500 MG, 1X/DAY
     Dates: start: 20080529
  13. ASPIRIN [Concomitant]
     Indication: PROPHYLAXIS
     Dosage: 81 MG, 1X/DAY
     Dates: start: 20100217
  14. BLINDED NO SUBJECT DRUG [Suspect]
     Indication: BREAST CANCER
     Dosage: UNK
     Route: 048
     Dates: start: 20100217, end: 20110212
  15. FENOFIBRIC ACID [Suspect]
     Indication: HYPERTRIGLYCERIDAEMIA
     Dosage: 135 MG, 1X/DAY AT BEDTIME
     Dates: start: 20100318, end: 20100421
  16. FENOFIBRIC ACID [Suspect]
     Dosage: 135 MG, 1X/DAY
     Dates: start: 20110525
  17. MAGNESIUM [Concomitant]
     Indication: HYPOMAGNESAEMIA
     Dosage: 400 MG, 2X/DAY
     Dates: start: 20070412
  18. IMODIUM [Concomitant]
     Indication: DIARRHOEA
     Dosage: 2 MG, AS NEEDED

REACTIONS (2)
  - MEDICATION ERROR [None]
  - HYPERTRIGLYCERIDAEMIA [None]
